FAERS Safety Report 14628349 (Version 1)
Quarter: 2018Q1

REPORT INFORMATION
  Report Type: Spontaneous
  Country: GB (occurrence: GB)
  Receive Date: 20180312
  Receipt Date: 20180312
  Transmission Date: 20180509
  Serious: Yes (Other)
  Sender: FDA-Public Use
  Company Number: GB-TEVA-2018-GB-868044

PATIENT
  Age: 28 Year
  Sex: Female
  Weight: 56 kg

DRUGS (7)
  1. NALOXONE HYDROCHLORIDE. [Concomitant]
     Active Substance: NALOXONE HYDROCHLORIDE
     Dosage: AS DIRECTED
     Route: 065
  2. CASSIA [Concomitant]
     Dosage: 1-2
     Route: 065
  3. VENLAFAXINE [Concomitant]
     Active Substance: VENLAFAXINE HYDROCHLORIDE
     Dosage: 1 DOSAGE FORMS DAILY; 07:00
     Route: 065
  4. THIAMINE. [Concomitant]
     Active Substance: THIAMINE
     Route: 065
  5. PARACETAMOL [Suspect]
     Active Substance: ACETAMINOPHEN
     Route: 065
  6. QUETIAPINE. [Concomitant]
     Active Substance: QUETIAPINE
     Dosage: 1 DOSAGE FORMS DAILY;
     Route: 065
  7. DIAZEPAM. [Concomitant]
     Active Substance: DIAZEPAM
     Route: 065

REACTIONS (1)
  - Hypersensitivity [Recovering/Resolving]
